FAERS Safety Report 13995706 (Version 2)
Quarter: 2019Q1

REPORT INFORMATION
  Report Type: Spontaneous
  Country: US (occurrence: US)
  Receive Date: 20170921
  Receipt Date: 20190305
  Transmission Date: 20190417
  Serious: No
  Sender: FDA-Public Use
  Company Number: US-PFIZER INC-2017407854

PATIENT
  Age: 48 Year
  Sex: Male
  Weight: 86.17 kg

DRUGS (1)
  1. LYRICA [Suspect]
     Active Substance: PREGABALIN
     Indication: RADICULOPATHY
     Dosage: 75MG, TWICE A DAY
     Route: 048
     Dates: end: 20170918

REACTIONS (1)
  - Drug ineffective [Unknown]
